FAERS Safety Report 11254339 (Version 1)
Quarter: 2015Q3

REPORT INFORMATION
  Report Type: Spontaneous
  Country: GB (occurrence: GB)
  Receive Date: 20150709
  Receipt Date: 20150709
  Transmission Date: 20151125
  Serious: Yes (Death, Other)
  Sender: FDA-Public Use
  Company Number: GB-AUROBINDO-AUR-APL-2014-07312

PATIENT
  Age: 40 Year
  Sex: Male

DRUGS (27)
  1. LIORESAL [Suspect]
     Active Substance: BACLOFEN
     Dosage: 227.52 MICRO GRAM, ONCE DAILY
     Route: 037
     Dates: start: 20140225, end: 20140225
  2. LIORESAL [Suspect]
     Active Substance: BACLOFEN
     Dosage: 207.44 MICRO GRAM, ONCE DAILY
     Route: 037
     Dates: start: 20140123, end: 20140127
  3. ZOPICLONE [Suspect]
     Active Substance: ZOPICLONE
     Indication: INSOMNIA
     Dosage: 3.75 MG, UNK
     Route: 048
     Dates: start: 20130220
  4. BACLOFEN. [Suspect]
     Active Substance: BACLOFEN
     Indication: CEREBROVASCULAR ACCIDENT
  5. LIORESAL [Suspect]
     Active Substance: BACLOFEN
     Indication: MUSCLE SPASTICITY
     Dosage: 248.72 MICRO GRAM, ONCE DAILY
     Route: 037
     Dates: start: 20140204, end: 20140206
  6. LIORESAL [Suspect]
     Active Substance: BACLOFEN
     Dosage: 248.72 MICRO GRAM, ONCE DAILY
     Route: 037
     Dates: start: 20140128, end: 20140130
  7. IBUPROFEN. [Suspect]
     Active Substance: IBUPROFEN
     Indication: ANALGESIC THERAPY
     Dosage: 1200 MG, UNK
     Route: 048
     Dates: start: 20140109
  8. RAMIPRIL 2.5MG [Suspect]
     Active Substance: RAMIPRIL
     Indication: HYPERTENSION
     Dosage: 2.5 MG, UNK
     Route: 048
     Dates: start: 20140113
  9. VENLAFAXINE [Suspect]
     Active Substance: VENLAFAXINE HYDROCHLORIDE
     Indication: DEPRESSION
     Dosage: 75 MG, UNK
     Route: 048
     Dates: start: 20140226
  10. LIORESAL [Suspect]
     Active Substance: BACLOFEN
     Dosage: 143.94 MICRO GRAM, ONCE DAILY
     Route: 037
     Dates: start: 20140121, end: 20140203
  11. SERTRALINE 50MG [Suspect]
     Active Substance: SERTRALINE HYDROCHLORIDE
     Indication: DEPRESSION
     Dosage: 50 MG, UNK
     Route: 048
     Dates: start: 20121210, end: 20140101
  12. BACLOFEN. [Suspect]
     Active Substance: BACLOFEN
     Indication: MUSCLE SPASTICITY
     Dosage: 60 MG, UNK
     Route: 048
     Dates: start: 20120801, end: 20140120
  13. LIORESAL [Suspect]
     Active Substance: BACLOFEN
     Route: 037
  14. PARACETAMOL [Suspect]
     Active Substance: ACETAMINOPHEN
     Indication: ANALGESIC THERAPY
     Dosage: 1000 MG, AS NECESSARY
     Route: 048
     Dates: start: 20121112
  15. CO-DYDRAMOL [Suspect]
     Active Substance: ACETAMINOPHEN\DIHYDROCODEINE
     Indication: ANALGESIC THERAPY
     Dosage: 2000 MG, UNK
     Route: 048
     Dates: start: 20140109
  16. LIORESAL [Suspect]
     Active Substance: BACLOFEN
     Dosage: 297.42 MICRO GRAM, ONCE DAILY
     Route: 037
     Dates: start: 20140121, end: 20140121
  17. SILDENAFIL 50MG (SILDENAFIL) UNKNOWN, 50MG [Suspect]
     Active Substance: SILDENAFIL
     Indication: ERECTILE DYSFUNCTION
     Dosage: 50 MG, AS NECESSARY
     Route: 048
     Dates: start: 20130220
  18. LIORESAL [Suspect]
     Active Substance: BACLOFEN
     Dosage: 274.29 MICRO GRAM, ONCE DAILY
     Route: 037
     Dates: start: 20140311
  19. LIORESAL [Suspect]
     Active Substance: BACLOFEN
     Dosage: 100 MICRO GRAM, ONCE DAILY
     Route: 037
     Dates: start: 20140117, end: 20140119
  20. LIORESAL [Suspect]
     Active Substance: BACLOFEN
     Dosage: 172.03 MICRO GRAM, ONCE DAILY
     Route: 037
     Dates: start: 20140122, end: 20140122
  21. LIORESAL [Suspect]
     Active Substance: BACLOFEN
     Dosage: 249.98 MICRO GRAM, ONCE DAILY
     Route: 037
     Dates: start: 20140226, end: 20140310
  22. MIRTAZAPINE. [Suspect]
     Active Substance: MIRTAZAPINE
     Indication: PRODUCT USED FOR UNKNOWN INDICATION
     Dosage: UNK
     Route: 065
     Dates: start: 20140522
  23. LIORESAL [Suspect]
     Active Substance: BACLOFEN
     Dosage: 120.13 MICRO GRAM, ONCE DAILY
     Route: 037
     Dates: start: 20140120, end: 20140120
  24. LIORESAL [Suspect]
     Active Substance: BACLOFEN
     Dosage: UNK
     Route: 037
     Dates: start: 20140120
  25. AMLODIPINE [Suspect]
     Active Substance: AMLODIPINE BESYLATE
     Indication: HYPERTENSION
     Dosage: 30 MG, UNK
     Route: 048
     Dates: start: 20120705
  26. METOPROLOL [Suspect]
     Active Substance: METOPROLOL
     Indication: HYPERTENSION
     Dosage: 300 MG, UNK
     Route: 048
     Dates: start: 20120705
  27. LIORESAL [Suspect]
     Active Substance: BACLOFEN
     Indication: CEREBROVASCULAR ACCIDENT
     Dosage: 207.44 MICRO GRAM, ONCE DAILY
     Route: 037
     Dates: start: 20140207, end: 20140224

REACTIONS (31)
  - Sudden death [Fatal]
  - Hepatic steatosis [Fatal]
  - Self injurious behaviour [Fatal]
  - Wound dehiscence [Fatal]
  - Anxiety [Fatal]
  - Pain [Fatal]
  - Blood ethanol increased [Fatal]
  - Neutrophil count increased [Fatal]
  - Implant site extravasation [Fatal]
  - Pulmonary oedema [Fatal]
  - Pulmonary congestion [Fatal]
  - Depression [Fatal]
  - Purulent discharge [Fatal]
  - Onychomycosis [Fatal]
  - Scratch [Fatal]
  - Fall [Fatal]
  - Mental disorder [Fatal]
  - Macrophages increased [Fatal]
  - Unevaluable event [Unknown]
  - Cardiomegaly [Fatal]
  - Erectile dysfunction [Fatal]
  - Insomnia [Fatal]
  - Pain in extremity [Fatal]
  - Scar [Fatal]
  - Conjunctival hyperaemia [Fatal]
  - Alcohol poisoning [Fatal]
  - Stress [Fatal]
  - Petechiae [Fatal]
  - Implant site infection [Fatal]
  - Condition aggravated [Fatal]
  - Toxicity to various agents [Fatal]

NARRATIVE: CASE EVENT DATE: 20140611
